FAERS Safety Report 11024344 (Version 2)
Quarter: 2016Q1

REPORT INFORMATION
  Report Type: Spontaneous
  Country: FR (occurrence: FR)
  Receive Date: 20150414
  Receipt Date: 20160112
  Transmission Date: 20160525
  Serious: Yes (Hospitalization)
  Sender: FDA-Public Use
  Company Number: FR-ROCHE-1562704

PATIENT
  Age: 66 Year
  Sex: Male

DRUGS (17)
  1. CORTANCYL [Suspect]
     Active Substance: PREDNISONE
     Indication: LYMPHOMA
     Dosage: D1, D2 AND D3
     Route: 048
     Dates: start: 20150223, end: 20150224
  2. MABTHERA [Suspect]
     Active Substance: RITUXIMAB
     Indication: LYMPHOMA
     Route: 042
  3. CARBOPLATIN. [Suspect]
     Active Substance: CARBOPLATIN
     Indication: LYMPHOMA
     Route: 042
     Dates: start: 20150123
  4. ZOPHREN [Suspect]
     Active Substance: ONDANSETRON
     Indication: PRODUCT USED FOR UNKNOWN INDICATION
     Route: 042
     Dates: start: 20150223, end: 20150224
  5. MABTHERA [Suspect]
     Active Substance: RITUXIMAB
     Dosage: DAY 1 OF TREATMENT
     Route: 042
     Dates: start: 20150223, end: 20150223
  6. IFOSFAMIDE. [Suspect]
     Active Substance: IFOSFAMIDE
     Indication: LYMPHOMA
     Route: 042
     Dates: start: 20150123
  7. ETOPOSIDE. [Suspect]
     Active Substance: ETOPOSIDE
     Dosage: D1, D2 AND D3
     Route: 042
     Dates: start: 20150223, end: 20150224
  8. OXALIPLATIN. [Concomitant]
     Active Substance: OXALIPLATIN
  9. DEXAMETHASONE. [Concomitant]
     Active Substance: DEXAMETHASONE
  10. CYTARABINE. [Concomitant]
     Active Substance: CYTARABINE
  11. CARBOPLATIN. [Suspect]
     Active Substance: CARBOPLATIN
     Dosage: D2
     Route: 042
     Dates: start: 20150224, end: 20150224
  12. POLARAMINE [Suspect]
     Active Substance: DEXCHLORPHENIRAMINE MALEATE
     Indication: PRODUCT USED FOR UNKNOWN INDICATION
     Route: 042
     Dates: start: 20150223, end: 20150223
  13. METHOTREXATE [Concomitant]
     Active Substance: METHOTREXATE
     Route: 037
  14. ARACYTINE [Concomitant]
     Active Substance: CYTARABINE
     Route: 037
  15. UROMITEXAN [Suspect]
     Active Substance: MESNA
     Indication: PRODUCT USED FOR UNKNOWN INDICATION
     Route: 042
     Dates: start: 20150224, end: 20150224
  16. IFOSFAMIDE. [Suspect]
     Active Substance: IFOSFAMIDE
     Dosage: DAY 2 OF TREATMENT
     Route: 042
     Dates: start: 20150224, end: 20150224
  17. ETOPOSIDE. [Suspect]
     Active Substance: ETOPOSIDE
     Indication: LYMPHOMA
     Route: 042
     Dates: start: 20150123

REACTIONS (1)
  - Seizure [Recovered/Resolved]

NARRATIVE: CASE EVENT DATE: 20150225
